FAERS Safety Report 5065334-9 (Version None)
Quarter: 2006Q3

REPORT INFORMATION
  Report Type: 
  Country: None (occurrence: None)
  Receive Date: 20060725
  Receipt Date: 20060712
  Transmission Date: 20061208
  Serious: Yes (Hospitalization)
  Sender: FDA-Public Use
  Company Number: E2020-00250-SPO-JP

PATIENT

DRUGS (2)
  1. ARICEPT [Suspect]
     Dosage: ORAL
     Route: 048
  2. LASIX [Suspect]
     Dosage: ORAL
     Route: 048

REACTIONS (1)
  - THROMBOCYTOPENIC PURPURA [None]
